FAERS Safety Report 19740569 (Version 1)
Quarter: 2021Q3

REPORT INFORMATION
  Report Type: Spontaneous
  Country: CN (occurrence: CN)
  Receive Date: 20210824
  Receipt Date: 20210824
  Transmission Date: 20211014
  Serious: Yes (Other)
  Sender: FDA-Public Use
  Company Number: CN-PFIZER INC-202101029542

PATIENT
  Age: 28 Year
  Sex: Female

DRUGS (4)
  1. OXALIPLATIN. [Suspect]
     Active Substance: OXALIPLATIN
     Indication: RECTAL CANCER
     Dosage: 100 MG/M2, EVERY 3 WEEKS (CYCLIC (ON DAY 1)
     Dates: start: 20180423
  2. BEVACIZUMAB. [Suspect]
     Active Substance: BEVACIZUMAB
     Indication: RECTAL CANCER
     Dosage: 7.5 MG/KG, EVERY 3 WEEKS (ON DAY 1 (ON SECOND CYCLE)
     Dates: start: 20210423
  3. IRINOTECAN HCL [Suspect]
     Active Substance: IRINOTECAN HYDROCHLORIDE
     Indication: RECTAL CANCER
     Dosage: 150 MG/M2, EVERY 3 WEEKS CYCLIC
     Dates: start: 20180423
  4. CAPECITABINE. [Suspect]
     Active Substance: CAPECITABINE
     Indication: RECTAL CANCER
     Dosage: 1700 MG/M2, EVERY 3 WEEKS, CYCLIC (PER DAY FROM DAY 2 TO 15)
     Dates: start: 20181230

REACTIONS (3)
  - Neurotoxicity [Unknown]
  - Neutropenia [Unknown]
  - Vomiting [Unknown]
